FAERS Safety Report 20131203 (Version 9)
Quarter: 2024Q1

REPORT INFORMATION
  Report Type: Spontaneous
  Country: US (occurrence: US)
  Receive Date: 20211130
  Receipt Date: 20240122
  Transmission Date: 20240410
  Serious: No
  Sender: FDA-Public Use
  Company Number: US-PFIZER INC-2019330671

PATIENT
  Age: 71 Year
  Sex: Female

DRUGS (3)
  1. PREMARIN [Suspect]
     Active Substance: ESTROGENS, CONJUGATED
     Dosage: 0.5 G (0.5 GM ON FINGER TIP LENGTH MONDAY WEDNESDAY, FRIDAY 3 X^S A WEEK)
     Route: 067
  2. PREMARIN [Suspect]
     Active Substance: ESTROGENS, CONJUGATED
     Dosage: 0.3 MG DAILY
  3. PREMARIN [Suspect]
     Active Substance: ESTROGENS, CONJUGATED
     Dosage: 0.5 G, THREE TIMES A WEEK
     Route: 067
     Dates: start: 20230104

REACTIONS (3)
  - Anxiety [Unknown]
  - Movement disorder [Unknown]
  - Off label use [Unknown]
